FAERS Safety Report 7335716-0 (Version None)
Quarter: 2011Q1

REPORT INFORMATION
  Report Type: 
  Country: None (occurrence: None)
  Receive Date: 20110301
  Receipt Date: 20110301
  Transmission Date: 20110831
  Serious: Yes (Hospitalization)
  Sender: FDA-Public Use
  Company Number: None

PATIENT
  Sex: Female
  Weight: 91.32 kg

DRUGS (2)
  1. CARBOPLATIN [Suspect]
     Dates: end: 20110216
  2. PACLITAXEL [Suspect]
     Dates: end: 20110216

REACTIONS (2)
  - ANAPHYLACTIC REACTION [None]
  - RESPIRATORY DISTRESS [None]
